FAERS Safety Report 16208734 (Version 1)
Quarter: 2019Q2

REPORT INFORMATION
  Report Type: Spontaneous
  Country: PL (occurrence: PL)
  Receive Date: 20190417
  Receipt Date: 20190417
  Transmission Date: 20190711
  Serious: Yes (Other)
  Sender: FDA-Public Use
  Company Number: PL-009507513-1904POL006626

PATIENT
  Age: 34 Year
  Sex: Female
  Weight: 62 kg

DRUGS (3)
  1. CELESTONE [Suspect]
     Active Substance: BETAMETHASONE
     Dosage: DOSE: 12 (M)G
     Route: 042
     Dates: start: 20141218, end: 20141218
  2. DOPEGYT [Concomitant]
     Active Substance: METHYLDOPA
     Dosage: DOSE: 3X2
  3. NATAMYCIN [Concomitant]
     Active Substance: NATAMYCIN
     Route: 067

REACTIONS (3)
  - Erythema [Recovered/Resolved]
  - Pruritus [Recovered/Resolved]
  - Rash [Recovered/Resolved]

NARRATIVE: CASE EVENT DATE: 20141218
